FAERS Safety Report 4373671-6 (Version None)
Quarter: 2004Q1

REPORT INFORMATION
  Report Type: 
  Country: None (occurrence: None)
  Receive Date: 20040305
  Receipt Date: 20031120
  Transmission Date: 20041129
  Serious: Yes (Other)
  Sender: FDA-Public Use
  Company Number: 2003UW15462

PATIENT
  Age: 53 Year
  Sex: Female

DRUGS (6)
  1. CRESTOR [Suspect]
     Indication: HYPERCHOLESTEROLAEMIA
     Dosage: 10 MG QD PO
     Route: 048
  2. PRIMIDONE [Concomitant]
  3. DIAZEPAM [Concomitant]
  4. OXYCODONE [Concomitant]
  5. DETROL [Concomitant]
  6. NORTRIPTYLINE HCL [Concomitant]

REACTIONS (3)
  - HEADACHE [None]
  - MYALGIA [None]
  - POLLAKIURIA [None]
